FAERS Safety Report 11084332 (Version 2)
Quarter: 2015Q2

REPORT INFORMATION
  Report Type: Spontaneous
  Country: US (occurrence: US)
  Receive Date: 20150502
  Receipt Date: 20150507
  Transmission Date: 20150821
  Serious: Yes (Hospitalization, Other)
  Sender: FDA-Public Use
  Company Number: US-AUROBINDO-AUR-APL-2015-03736

PATIENT
  Age: 56 Year
  Sex: Male
  Weight: 90.7 kg

DRUGS (16)
  1. TRICOR                             /00090101/ [Suspect]
     Active Substance: ADENOSINE
     Indication: HYPERLIPIDAEMIA
     Dosage: 145 MG, ONCE A DAY
     Route: 048
     Dates: start: 201403
  2. AMITRIPTYLINE [Suspect]
     Active Substance: AMITRIPTYLINE
     Indication: LETHARGY
     Dosage: 25 MG, QHS
     Route: 048
     Dates: start: 20150320
  3. METOPROLOL [Suspect]
     Active Substance: METOPROLOL
     Indication: PROPHYLAXIS
     Dosage: 12.5 MG, TWO TIMES A DAY
     Route: 048
     Dates: start: 20150320
  4. GLIPIZIDE. [Suspect]
     Active Substance: GLIPIZIDE
     Indication: TYPE 2 DIABETES MELLITUS
     Dosage: 10 MG, TWO TIMES A DAY
     Route: 048
     Dates: start: 1999
  5. LANTUS [Suspect]
     Active Substance: INSULIN GLARGINE
     Indication: TYPE 2 DIABETES MELLITUS
     Dosage: 22 U, QHS
     Route: 058
     Dates: start: 201404
  6. LANTUS [Suspect]
     Active Substance: INSULIN GLARGINE
     Dosage: 24 U, QHS
     Route: 058
     Dates: start: 20150320
  7. HYDROCODONE BITARTRATE AND ACETAMINOPHEN [Suspect]
     Active Substance: ACETAMINOPHEN\HYDROCODONE BITARTRATE
     Indication: PAIN IN EXTREMITY
     Dosage: 7.5/325 MG AS NECESSARY
     Route: 048
     Dates: start: 201307
  8. RANITIDINE [Suspect]
     Active Substance: RANITIDINE\RANITIDINE HYDROCHLORIDE
     Indication: GASTROOESOPHAGEAL REFLUX DISEASE
     Dosage: 150 MG, TWO TIMES A DAY
     Route: 048
     Dates: start: 201205
  9. ATORVASTATIN [Suspect]
     Active Substance: ATORVASTATIN
     Indication: HYPERLIPIDAEMIA
     Dosage: 80 MG, ONCE A DAY
     Route: 048
     Dates: start: 201403
  10. LISINOPRIL. [Suspect]
     Active Substance: LISINOPRIL
     Indication: HYPERTENSION
     Dosage: 20 MG, ONCE A DAY
     Route: 048
     Dates: start: 201408
  11. ASA [Suspect]
     Active Substance: ASPIRIN
     Indication: PROPHYLAXIS
     Dosage: 81 MG, ONCE A DAY
     Route: 048
     Dates: start: 201205
  12. HUMALOG [Suspect]
     Active Substance: INSULIN LISPRO
     Indication: TYPE 2 DIABETES MELLITUS
     Dosage: 15 U, 3 TIMES A DAY
     Route: 058
     Dates: start: 201407
  13. METFORMIN [Suspect]
     Active Substance: METFORMIN HYDROCHLORIDE
     Indication: TYPE 2 DIABETES MELLITUS
     Dosage: 1000 MG, TWO TIMES A DAY
     Route: 048
     Dates: start: 1999
  14. LYRICA [Suspect]
     Active Substance: PREGABALIN
     Indication: NEUROPATHY PERIPHERAL
     Dosage: 200 MG, TWO TIMES A DAY
     Route: 048
     Dates: start: 201408
  15. RANEXA [Suspect]
     Active Substance: RANOLAZINE
     Dosage: 1000 MG, TWO TIMES A DAY
     Route: 048
     Dates: start: 20150416
  16. RANEXA [Suspect]
     Active Substance: RANOLAZINE
     Indication: PROPHYLAXIS
     Dosage: 500 MG, TWO TIMES A DAY
     Route: 048
     Dates: start: 20150320, end: 20150415

REACTIONS (1)
  - Myocardial infarction [Recovered/Resolved]

NARRATIVE: CASE EVENT DATE: 20150318
